FAERS Safety Report 18954639 (Version 1)
Quarter: 2021Q1

REPORT INFORMATION
  Report Type: Spontaneous
  Country: US (occurrence: US)
  Receive Date: 20210301
  Receipt Date: 20210301
  Transmission Date: 20210420
  Serious: No
  Sender: FDA-Public Use
  Company Number: US-AMGEN-USASP2021028885

PATIENT
  Age: 80 Year
  Sex: Female

DRUGS (1)
  1. PROLIA [Suspect]
     Active Substance: DENOSUMAB
     Indication: PRODUCT USED FOR UNKNOWN INDICATION
     Dosage: UNK
     Route: 065
     Dates: start: 20200915

REACTIONS (5)
  - Night sweats [Unknown]
  - Pruritus [Unknown]
  - Paraesthesia [Unknown]
  - Swelling [Unknown]
  - Bone pain [Unknown]

NARRATIVE: CASE EVENT DATE: 2020
